FAERS Safety Report 23942266 (Version 4)
Quarter: 2024Q4

REPORT INFORMATION
  Report Type: Spontaneous
  Country: DE (occurrence: DE)
  Receive Date: 20240605
  Receipt Date: 20241205
  Transmission Date: 20250114
  Serious: Yes (Hospitalization, Other)
  Sender: PFIZER
  Company Number: DE-SAMSUNG BIOEPIS-SB-2024-15776

PATIENT
  Age: 77 Year
  Sex: Female
  Weight: 58 kg

DRUGS (15)
  1. LEUCOVORIN CALCIUM [Suspect]
     Active Substance: LEUCOVORIN CALCIUM
     Indication: Adenocarcinoma gastric
     Dosage: 200MG/M2, IV, D1/D15/D29 AND D43 PRE AND MED POST OP
     Route: 042
     Dates: start: 20240508
  2. LEUCOVORIN CALCIUM [Suspect]
     Active Substance: LEUCOVORIN CALCIUM
     Dosage: 200MG/M2, IV, D1/D15/D29 AND D43 PRE AND MED POST OP, LAST DOSE BEFORE EVENTS WAS ON 27MAY2024
     Route: 042
     Dates: start: 20240527
  3. ONTRUZANT [Suspect]
     Active Substance: TRASTUZUMAB-DTTB
     Indication: Adenocarcinoma gastric
     Dosage: D1; 8MG/KG, IV; 6MG/KG IV D22/D43 PRE AND POST OP, AFTERWARDS 6MG/KG IV D1 Q3W
     Route: 042
     Dates: start: 20240508
  4. ONTRUZANT [Suspect]
     Active Substance: TRASTUZUMAB-DTTB
     Dosage: D1; 8MG/KG, IV; 6MG/KG IV D22/D43 PRE AND POST OP, AFTERWARDS 6MG/KG IV D1 Q3W
     Route: 065
     Dates: start: 20240508
  5. DOCETAXEL [Suspect]
     Active Substance: DOCETAXEL
     Indication: Adenocarcinoma gastric
     Dosage: 50MG/M2, IV, D1/D15/D29 AND D43 PRE AND POST OP
     Route: 042
     Dates: start: 20240508
  6. DOCETAXEL [Suspect]
     Active Substance: DOCETAXEL
     Dosage: 50MG/M2, IV, D1/D15/D29 AND D43 PRE AND POST OP, LAST DOSE BEFORE EVENTS WAS ON 27 MAY 2024
     Route: 042
     Dates: start: 20240527
  7. FLUOROURACIL [Suspect]
     Active Substance: FLUOROURACIL
     Indication: Adenocarcinoma gastric
     Dosage: 2600MG/M2, IV, D1/D15/D29 AND D43 PRE AND POST OP
     Route: 042
     Dates: start: 20240508
  8. FLUOROURACIL [Suspect]
     Active Substance: FLUOROURACIL
     Dosage: 2600MG/M2, IV, D1/D15/D29 AND D43 PRE AND POST OP, LAST DOSE BEFORE EVENTS WAS ON 27 MAY 2024
     Route: 042
     Dates: start: 20240527
  9. PEMBROLIZUMAB [Suspect]
     Active Substance: PEMBROLIZUMAB
     Indication: Adenocarcinoma gastric
     Dosage: D1/D22/D43 PRE AND POST OP, AFTERWARDS D1 Q3W
     Route: 042
     Dates: start: 20240508
  10. OXALIPLATIN [Suspect]
     Active Substance: OXALIPLATIN
     Indication: Adenocarcinoma gastric
     Dosage: 85MG/M2, IV, D1/D15/D29 AND D43 PRE AND POST OP
     Route: 042
     Dates: start: 20240508
  11. TORSEMIDE [Concomitant]
     Active Substance: TORSEMIDE
     Dosage: 1-0-0
  12. SODIUM PICOSULFATE [Concomitant]
     Active Substance: SODIUM PICOSULFATE
     Indication: Constipation
     Dosage: 7.5 MG/ML, 15 DROPS AT NIGHT
  13. AMLODIPINE [Concomitant]
     Active Substance: AMLODIPINE BESYLATE
     Dosage: 1-0-0
  14. RAMIPRIL [Concomitant]
     Active Substance: RAMIPRIL
     Dosage: FREQ:12 H;1-0-1
  15. PANTOPRAZOLE [Concomitant]
     Active Substance: PANTOPRAZOLE
     Dosage: FREQ:12 H;1-0-1

REACTIONS (12)
  - Nausea [Recovered/Resolved]
  - Weight decreased [Recovered/Resolved]
  - Vomiting [Recovered/Resolved]
  - Inflammation [Recovered/Resolved]
  - Leukocytosis [Not Recovered/Not Resolved]
  - Decreased appetite [Recovered/Resolved]
  - Diarrhoea [Recovered/Resolved]
  - Dysphagia [Recovered/Resolved]
  - Sepsis [Recovered/Resolved]
  - Cardiovascular disorder [Recovered/Resolved]
  - C-reactive protein increased [Recovered/Resolved]
  - Off label use [Unknown]

NARRATIVE: CASE EVENT DATE: 20240508
